FAERS Safety Report 5848647-X (Version None)
Quarter: 2008Q3

REPORT INFORMATION
  Report Type: 
  Country: None (occurrence: None)
  Receive Date: 20080818
  Receipt Date: 20080806
  Transmission Date: 20090109
  Serious: Yes (Death)
  Sender: FDA-Public Use
  Company Number: US-SANOFI-SYNTHELABO-A03200802903

PATIENT
  Sex: Female
  Weight: 51.1 kg

DRUGS (4)
  1. PLAVIX [Suspect]
     Indication: STENT PLACEMENT
     Route: 048
     Dates: start: 20080623, end: 20080708
  2. TICLOPIDINE HCL [Concomitant]
     Indication: DRUG USE FOR UNKNOWN INDICATION
     Route: 065
     Dates: start: 20080709
  3. NITROGLYCERIN [Concomitant]
     Indication: CHEST PAIN
     Route: 060
  4. ASPIRIN [Concomitant]
     Indication: DRUG USE FOR UNKNOWN INDICATION
     Route: 065

REACTIONS (7)
  - DEATH [None]
  - DYSPNOEA [None]
  - EXFOLIATIVE RASH [None]
  - HYPERSENSITIVITY [None]
  - LEUKAEMIA [None]
  - LEUKOPENIA [None]
  - PYREXIA [None]
